FAERS Safety Report 15037317 (Version 1)
Quarter: 2018Q2

REPORT INFORMATION
  Report Type: Spontaneous
  Country: DE (occurrence: DE)
  Receive Date: 20180620
  Receipt Date: 20180620
  Transmission Date: 20180711
  Serious: Yes (Hospitalization)
  Sender: FDA-Public Use
  Company Number: DE-TEVA-2018-DE-908663

PATIENT
  Age: 95 Year
  Sex: Female

DRUGS (6)
  1. TORASEMID [Suspect]
     Active Substance: TORSEMIDE
     Dosage: 10 MG, 1-0-0-0
     Route: 065
  2. CALCIUM D3 FORTE-CT [Concomitant]
     Dosage: NK MG, 0-1-0-0
     Route: 065
  3. EMSELEX 7,5MG [Concomitant]
     Dosage: 7.5 MG, 1-0-0-0
     Route: 065
  4. METOPROLOL. [Suspect]
     Active Substance: METOPROLOL
     Dosage: 47.5 MG, 1-0-0-0
     Route: 065
  5. ASS 100 [Concomitant]
     Active Substance: ASPIRIN
     Dosage: 100 MG, 0-1-0-0
     Route: 065
  6. LEVOTHYROXIN [Concomitant]
     Active Substance: LEVOTHYROXINE
     Dosage: 100 ?G, 1-0-0-0
     Route: 065

REACTIONS (2)
  - Dehydration [Unknown]
  - Muscular weakness [Unknown]
